FAERS Safety Report 20657534 (Version 3)
Quarter: 2023Q2

REPORT INFORMATION
  Report Type: Spontaneous
  Country: CH (occurrence: CH)
  Receive Date: 20220331
  Receipt Date: 20230601
  Transmission Date: 20230722
  Serious: Yes (Congenital Anomaly, Other)
  Sender: FDA-Public Use
  Company Number: CH-TEVA-2022-CH-2016926

PATIENT

DRUGS (8)
  1. FREMANEZUMAB [Suspect]
     Active Substance: FREMANEZUMAB
     Indication: Product used for unknown indication
     Route: 064
  2. ACETAMINOPHEN\ASPIRIN\CAFFEINE [Concomitant]
     Active Substance: ACETAMINOPHEN\ASPIRIN\CAFFEINE
     Indication: Migraine prophylaxis
  3. ALBUTEROL [Concomitant]
     Active Substance: ALBUTEROL
     Indication: Product used for unknown indication
  4. ETHINYL ESTRADIOL [Concomitant]
     Active Substance: ETHINYL ESTRADIOL
     Indication: Contraception
  5. IRON [Concomitant]
     Active Substance: IRON
     Indication: Product used for unknown indication
  6. NORETHINDRONE [Concomitant]
     Active Substance: NORETHINDRONE
     Indication: Contraception
  7. ETHINYL ESTRADIOL\LEVONORGESTREL [Concomitant]
     Active Substance: ETHINYL ESTRADIOL\LEVONORGESTREL
     Indication: Contraception
  8. ALBUTEROL [Concomitant]
     Active Substance: ALBUTEROL
     Indication: Product used for unknown indication

REACTIONS (3)
  - Renal aplasia [Unknown]
  - Gastrooesophageal reflux disease [Unknown]
  - Foetal exposure during pregnancy [Unknown]
